FAERS Safety Report 9393928 (Version 1)
Quarter: 2013Q3

REPORT INFORMATION
  Report Type: Spontaneous
  Country: CH (occurrence: None)
  Receive Date: 20130705
  Receipt Date: 20130705
  Transmission Date: 20140515
  Serious: Yes (Other)
  Sender: FDA-Public Use
  Company Number: 7221183

PATIENT
  Age: 65 Year
  Sex: Female

DRUGS (1)
  1. L-THYROXINE [Suspect]
     Indication: HYPOTHYROIDISM

REACTIONS (2)
  - Rheumatoid arthritis [None]
  - Vitamin D deficiency [None]
